FAERS Safety Report 4630438-9 (Version None)
Quarter: 2005Q2

REPORT INFORMATION
  Report Type: 
  Country: None (occurrence: None)
  Receive Date: 20050406
  Receipt Date: 20050322
  Transmission Date: 20051028
  Serious: Yes (Hospitalization)
  Sender: FDA-Public Use
  Company Number: TRP_0088_2005

PATIENT
  Age: 44 Year
  Sex: Male
  Weight: 113.3993 kg

DRUGS (5)
  1. RIBASPHERE [Suspect]
     Indication: HEPATITIS C
     Dosage: 600 MG BID PO
     Route: 048
     Dates: start: 20031128, end: 20040830
  2. INFERGEN [Suspect]
     Indication: HEPATITIS C
     Dosage: 15 MCG 3XWK SC
     Route: 058
     Dates: start: 20031128, end: 20040830
  3. MICRONASE [Concomitant]
  4. PROZAC [Concomitant]
  5. PRINIVIL [Concomitant]

REACTIONS (2)
  - ALANINE AMINOTRANSFERASE INCREASED [None]
  - ALCOHOLISM [None]
